FAERS Safety Report 12089987 (Version 1)
Quarter: 2016Q1

REPORT INFORMATION
  Report Type: Other
  Country: TR (occurrence: TR)
  Receive Date: 20160218
  Receipt Date: 20160218
  Transmission Date: 20160526
  Serious: Yes (Hospitalization)
  Sender: FDA-Public Use
  Company Number: TR-DEP_13592_2016

PATIENT
  Age: 32 Year
  Sex: Female

DRUGS (1)
  1. FENTANYL. [Suspect]
     Active Substance: FENTANYL
     Indication: ARTHRALGIA
     Dosage: 75 MCG/HR PATCH, 3 PATCHES ON MEDIAL THIGH
     Route: 062

REACTIONS (13)
  - Dizziness [Unknown]
  - Nausea [Unknown]
  - Syncope [Recovered/Resolved]
  - Respiratory depression [Recovered/Resolved]
  - Drug ineffective [Unknown]
  - Prescription drug used without a prescription [Unknown]
  - Accidental overdose [Unknown]
  - Loss of consciousness [Recovered/Resolved]
  - Hyperhidrosis [Unknown]
  - Bradycardia [Unknown]
  - Hypotension [Unknown]
  - Cardio-respiratory arrest [Recovered/Resolved]
  - Chest discomfort [Unknown]
